FAERS Safety Report 17461226 (Version 3)
Quarter: 2020Q2

REPORT INFORMATION
  Report Type: Spontaneous
  Country: GR (occurrence: GR)
  Receive Date: 20200226
  Receipt Date: 20200519
  Transmission Date: 20200713
  Serious: Yes (Life-Threatening, Other)
  Sender: FDA-Public Use
  Company Number: GR-PFIZER INC-2020078677

PATIENT
  Sex: Female
  Weight: 1.67 kg

DRUGS (6)
  1. VINCRISTINE SULFATE. [Suspect]
     Active Substance: VINCRISTINE SULFATE
     Indication: B PRECURSOR TYPE ACUTE LEUKAEMIA
     Dosage: 2 MG, CYCLIC (EVERY 7 DAYS)
     Route: 064
  2. DEXAMETHASONE. [Suspect]
     Active Substance: DEXAMETHASONE
     Indication: B PRECURSOR TYPE ACUTE LEUKAEMIA
     Dosage: EVERY 7 DAYS
     Route: 064
  3. DOXORUBICIN HCL [Suspect]
     Active Substance: DOXORUBICIN HYDROCHLORIDE
     Indication: B PRECURSOR TYPE ACUTE LEUKAEMIA
     Dosage: 580 MG, UNK; 4 DOSES OF 50MG
     Route: 064
  4. ALLOPURINOL. [Concomitant]
     Active Substance: ALLOPURINOL
     Dosage: 300 MG, UNK
     Route: 064
  5. FILGRASTIM [Suspect]
     Active Substance: FILGRASTIM
     Indication: B PRECURSOR TYPE ACUTE LEUKAEMIA
     Dosage: UNK, CYCLIC (EVERY 7 DAYS)
     Route: 064
  6. DEXAMETHASONE. [Suspect]
     Active Substance: DEXAMETHASONE
     Dosage: 4 MG, 1X/DAY
     Route: 064

REACTIONS (7)
  - Cardiac aneurysm [Unknown]
  - Patent ductus arteriosus [Unknown]
  - Pericardial effusion [Unknown]
  - Cardiotoxicity [Unknown]
  - Foetal exposure during pregnancy [Unknown]
  - Cardiac failure [Unknown]
  - Right ventricular dilatation [Unknown]
